FAERS Safety Report 19179903 (Version 1)
Quarter: 2021Q2

REPORT INFORMATION
  Report Type: Spontaneous
  Country: AT (occurrence: AT)
  Receive Date: 20210426
  Receipt Date: 20210426
  Transmission Date: 20210717
  Serious: Yes (Other)
  Sender: FDA-Public Use
  Company Number: NVSC2021AT088886

PATIENT
  Age: 57 Year
  Sex: Female

DRUGS (1)
  1. CLAVAMOX 875 MG/125 MG ? FILMTABLETTEN [Suspect]
     Active Substance: AMOXICILLIN\CLAVULANATE POTASSIUM
     Indication: PRODUCT USED FOR UNKNOWN INDICATION
     Dosage: UNK
     Route: 048
     Dates: start: 20201109, end: 20201109

REACTIONS (4)
  - Dermatitis exfoliative generalised [Unknown]
  - Leukocytosis [Unknown]
  - Type I hypersensitivity [Unknown]
  - Pruritus [Unknown]

NARRATIVE: CASE EVENT DATE: 20201109
